FAERS Safety Report 4593802-2 (Version None)
Quarter: 2005Q1

REPORT INFORMATION
  Report Type: 
  Country: None (occurrence: None)
  Receive Date: 20050301
  Receipt Date: 20050218
  Transmission Date: 20050727
  Serious: Yes (Hospitalization)
  Sender: FDA-Public Use
  Company Number: US-BRISTOL-MYERS SQUIBB COMPANY-12868063

PATIENT
  Age: 52 Year
  Sex: Male
  Weight: 77 kg

DRUGS (3)
  1. AVALIDE [Suspect]
     Indication: HYPERTENSION
     Route: 048
     Dates: start: 20050107
  2. GEMFIBROZIL [Concomitant]
  3. NONSTEROIDAL ANTI-INFLAMMATORY [Concomitant]

REACTIONS (4)
  - PRURITUS [None]
  - RASH GENERALISED [None]
  - SWELLING [None]
  - WEIGHT INCREASED [None]
